FAERS Safety Report 21202445 (Version 1)
Quarter: 2022Q3

REPORT INFORMATION
  Report Type: Spontaneous
  Country: US (occurrence: None)
  Receive Date: 20220811
  Receipt Date: 20220811
  Transmission Date: 20221027
  Serious: Yes (Life-Threatening, Disabling, Other)
  Sender: FDA-Public Use
  Company Number: None

PATIENT
  Age: 68 Year
  Sex: Female
  Weight: 99 kg

DRUGS (1)
  1. CEFDINIR [Suspect]
     Active Substance: CEFDINIR
     Indication: Labyrinthitis
     Dosage: OTHER QUANTITY : 20 CAPSULE(S);?FREQUENCY : TWICE A DAY;?
     Route: 048
     Dates: start: 20220329, end: 20220401

REACTIONS (6)
  - Diarrhoea [None]
  - Urinary tract infection [None]
  - Chemical burn [None]
  - Decreased appetite [None]
  - Adverse drug reaction [None]
  - Gastrointestinal disorder [None]

NARRATIVE: CASE EVENT DATE: 20220329
